FAERS Safety Report 8154176-3 (Version None)
Quarter: 2012Q1

REPORT INFORMATION
  Report Type: 
  Country: None (occurrence: None)
  Receive Date: 20120221
  Receipt Date: 20120215
  Transmission Date: 20120608
  Serious: Yes (Hospitalization)
  Sender: FDA-Public Use
  Company Number: US-PFIZER INC-2012041494

PATIENT
  Sex: Female
  Weight: 68.027 kg

DRUGS (7)
  1. DILANTIN [Concomitant]
     Indication: CONVULSION
     Dosage: 400 MG, DAILY
     Route: 048
  2. INDERAL [Concomitant]
     Dosage: 150 MG, UNK
  3. SERTRALINE HYDROCHLORIDE [Suspect]
     Indication: NERVOUS SYSTEM DISORDER
     Dosage: 100 MG, UNK
     Route: 048
     Dates: start: 20120101
  4. CRESTOR [Concomitant]
     Indication: BLOOD CHOLESTEROL INCREASED
     Dosage: 20 MG, DAILY
     Route: 048
  5. DIGOXIN [Concomitant]
     Indication: CARDIAC DISORDER
     Dosage: 0.25 MG, UNK
  6. KEPPRA [Concomitant]
     Indication: CONVULSION
     Dosage: 1000 MG, 2X/DAY
  7. SINGULAIR [Concomitant]
     Indication: HYPERSENSITIVITY
     Dosage: 10 MG, DAILY

REACTIONS (3)
  - PHARYNGEAL OEDEMA [None]
  - DYSPNOEA [None]
  - RASH GENERALISED [None]
